FAERS Safety Report 11205262 (Version 2)
Quarter: 2015Q2

REPORT INFORMATION
  Report Type: Spontaneous
  Country: JP (occurrence: JP)
  Receive Date: 20150622
  Receipt Date: 20150622
  Transmission Date: 20150821
  Serious: Yes (Other)
  Sender: FDA-Public Use
  Company Number: JP-ACTAVIS-2015-11880

PATIENT
  Age: 75 Year
  Sex: Female

DRUGS (14)
  1. IRINOTECAN (UNKNOWN) [Suspect]
     Active Substance: IRINOTECAN
     Indication: OVARIAN CANCER METASTATIC
     Dosage: 60 MG X 2, CYCLICAL, 6 COURSES
     Route: 065
     Dates: start: 200804, end: 200808
  2. CARBOPLATIN (UNKNOWN) [Suspect]
     Active Substance: CARBOPLATIN
     Dosage: 300 MG, CYCLICAL, 6 COURSES
     Route: 065
     Dates: start: 200607, end: 200610
  3. CISPLATIN (UNKNOWN) [Suspect]
     Active Substance: CISPLATIN
     Indication: OVARIAN CANCER METASTATIC
     Dosage: 30 MG, TOTAL
     Route: 065
     Dates: start: 2007, end: 2007
  4. CYCLOPHOSPHAMIDE (UNKNOWN) [Suspect]
     Active Substance: CYCLOPHOSPHAMIDE
     Indication: OVARIAN CANCER STAGE III
     Dosage: CYCLICAL, 6 COURSES
     Route: 065
  5. PACLITAXEL (UNKNOWN) [Suspect]
     Active Substance: PACLITAXEL
     Indication: OVARIAN CANCER METASTATIC
     Dosage: 168 MG, CYCLICAL, 9 COURSES
     Route: 065
     Dates: end: 200601
  6. CARBOPLATIN (UNKNOWN) [Suspect]
     Active Substance: CARBOPLATIN
     Dosage: 200 MG, CYCLICAL, 3 COURSES
     Route: 065
     Dates: start: 200502
  7. IRINOTECAN (UNKNOWN) [Suspect]
     Active Substance: IRINOTECAN
     Dosage: 60 MG X 2, CYCLICAL, 6 COURSES
     Route: 065
     Dates: start: 200705, end: 200709
  8. CARBOPLATIN (UNKNOWN) [Suspect]
     Active Substance: CARBOPLATIN
     Dosage: 250-150 MG, CYCLICAL, 6 COURSES
     Route: 065
     Dates: start: 200705, end: 200709
  9. DOXORUBICIN (UNKNOWN) [Suspect]
     Active Substance: DOXORUBICIN
     Indication: OVARIAN CANCER STAGE III
     Dosage: CYCLICAL, 6 COURSES
     Route: 065
  10. PACLITAXEL (UNKNOWN) [Suspect]
     Active Substance: PACLITAXEL
     Dosage: 150 MG, CYCLICAL, 3 COURSES
     Route: 065
     Dates: start: 200502
  11. CARBOPLATIN (UNKNOWN) [Suspect]
     Active Substance: CARBOPLATIN
     Indication: OVARIAN CANCER METASTATIC
     Dosage: 150 MG, CYCLICAL, 6 COURSES
     Route: 065
     Dates: start: 200804, end: 200808
  12. CISPLATIN (UNKNOWN) [Suspect]
     Active Substance: CISPLATIN
     Dosage: CYCLICAL, 6 COURSES
     Route: 065
  13. IRINOTECAN (UNKNOWN) [Suspect]
     Active Substance: IRINOTECAN
     Dosage: 60 MG X 2, CYCLICAL, 6 COURSES
     Route: 065
     Dates: start: 200607, end: 200610
  14. CARBOPLATIN (UNKNOWN) [Suspect]
     Active Substance: CARBOPLATIN
     Dosage: 220 MG, CYCLICAL, 9 COURSES
     Route: 065
     Dates: end: 200601

REACTIONS (2)
  - Acute myeloid leukaemia [Unknown]
  - Refractory cytopenia with multilineage dysplasia [Unknown]

NARRATIVE: CASE EVENT DATE: 200812
